FAERS Safety Report 7792980-1 (Version None)
Quarter: 2011Q4

REPORT INFORMATION
  Report Type: 
  Country: None (occurrence: None)
  Receive Date: 20111003
  Receipt Date: 20110928
  Transmission Date: 20120403
  Serious: Yes (Other)
  Sender: FDA-Public Use
  Company Number: ZA-ABBOTT-11P-143-0858875-00

PATIENT
  Age: 38 Year
  Sex: Female

DRUGS (2)
  1. CHLORPROMAZINE HCL [Suspect]
     Indication: AFFECTIVE DISORDER
     Dosage: AT BEDTIME
     Route: 048
     Dates: start: 20090826, end: 20110607
  2. VALPROATE SODIUM [Suspect]
     Indication: AFFECTIVE DISORDER
     Dosage: AT BEDTIME
     Route: 048
     Dates: start: 20090501, end: 20110901

REACTIONS (2)
  - DYSTONIA [None]
  - TORTICOLLIS [None]
